FAERS Safety Report 24935347 (Version 1)
Quarter: 2025Q1

REPORT INFORMATION
  Report Type: Report from Study
  Country: US (occurrence: US)
  Receive Date: 20250206
  Receipt Date: 20250206
  Transmission Date: 20250409
  Serious: Yes (Other)
  Sender: ALEXION PHARMACEUTICALS
  Company Number: US-AstraZeneca-CH-00799918A

PATIENT

DRUGS (1)
  1. OSIMERTINIB [Suspect]
     Active Substance: OSIMERTINIB
     Route: 065

REACTIONS (4)
  - Lung carcinoma cell type unspecified stage IV [Unknown]
  - Therapy change [Unknown]
  - Magnetic resonance imaging abnormal [Unknown]
  - Therapy change [Unknown]
